FAERS Safety Report 9162814 (Version 1)
Quarter: 2013Q1

REPORT INFORMATION
  Report Type: Spontaneous
  Country: ES (occurrence: ES)
  Receive Date: 20130314
  Receipt Date: 20130314
  Transmission Date: 20140127
  Serious: Yes (Other)
  Sender: FDA-Public Use
  Company Number: ES-PFIZER INC-2013079966

PATIENT
  Age: 44 Year
  Sex: Female

DRUGS (3)
  1. CELEBREX [Suspect]
     Indication: PAIN
     Dosage: 200 MG, 1X/DAY
     Route: 048
     Dates: start: 20130107, end: 20130113
  2. ESCITALOPRAM [Concomitant]
     Indication: ANXIETY
     Dosage: 15 MG, 1X/DAY
     Route: 048
     Dates: start: 2011
  3. EUTIROX [Concomitant]
     Indication: HYPOTHYROIDISM
     Dosage: 75 MG, 1X/DAY
     Route: 048
     Dates: start: 2008

REACTIONS (4)
  - Renal disorder [Recovered/Resolved]
  - Oedema peripheral [Recovered/Resolved]
  - Oliguria [Recovered/Resolved]
  - Eyelid oedema [Recovered/Resolved]
